FAERS Safety Report 21467817 (Version 7)
Quarter: 2023Q1

REPORT INFORMATION
  Report Type: Report from Study
  Country: FR (occurrence: FR)
  Receive Date: 20221017
  Receipt Date: 20230210
  Transmission Date: 20230418
  Serious: Yes (Other)
  Sender: FDA-Public Use
  Company Number: FR-GILEAD-2022-0596212

PATIENT
  Sex: Female
  Weight: 68 kg

DRUGS (7)
  1. SACITUZUMAB GOVITECAN-HZIY [Suspect]
     Active Substance: SACITUZUMAB GOVITECAN-HZIY
     Indication: Breast cancer
     Dosage: 10 MG/KG C1D1 AND C1D8
     Route: 042
     Dates: start: 20220708, end: 20220722
  2. SACITUZUMAB GOVITECAN-HZIY [Suspect]
     Active Substance: SACITUZUMAB GOVITECAN-HZIY
     Dosage: 10 MG/KG C2D1 AND C2D8
     Route: 042
     Dates: start: 20220805, end: 20220812
  3. SACITUZUMAB GOVITECAN-HZIY [Suspect]
     Active Substance: SACITUZUMAB GOVITECAN-HZIY
     Dosage: 10 MG/KG C3D1 AND C3D8
     Route: 042
     Dates: start: 20220826, end: 20220902
  4. SACITUZUMAB GOVITECAN-HZIY [Suspect]
     Active Substance: SACITUZUMAB GOVITECAN-HZIY
     Dosage: 8 MG/KG C4 D1 AND D8
     Route: 042
     Dates: start: 20220923, end: 20220930
  5. SACITUZUMAB GOVITECAN-HZIY [Suspect]
     Active Substance: SACITUZUMAB GOVITECAN-HZIY
     Dosage: 8 MG/KG C5 D1 AND D8
     Route: 042
     Dates: start: 20221014, end: 20221021
  6. SACITUZUMAB GOVITECAN-HZIY [Suspect]
     Active Substance: SACITUZUMAB GOVITECAN-HZIY
     Dosage: 8 MG/KG, C6 D1/D8
     Route: 042
     Dates: start: 20221104, end: 20221118
  7. SACITUZUMAB GOVITECAN-HZIY [Suspect]
     Active Substance: SACITUZUMAB GOVITECAN-HZIY
     Dosage: 8 MG/KG, C7D1
     Route: 042
     Dates: start: 20221202

REACTIONS (5)
  - Malaise [Recovered/Resolved]
  - Asthenia [Unknown]
  - Fatigue [Unknown]
  - Inappropriate schedule of product administration [Recovered/Resolved]
  - Off label use [Recovered/Resolved]

NARRATIVE: CASE EVENT DATE: 20220715
